FAERS Safety Report 6123436-X (Version None)
Quarter: 2009Q1

REPORT INFORMATION
  Report Type: 
  Country: None (occurrence: None)
  Receive Date: 20090318
  Receipt Date: 20090306
  Transmission Date: 20090719
  Serious: Yes (Disabling)
  Sender: FDA-Public Use
  Company Number: GB-B.I. PHARMACEUTICALS,INC./RIDGEFIELD-2009-UK-00206UK

PATIENT
  Age: 48 Year
  Sex: Male
  Weight: 99 kg

DRUGS (12)
  1. VIRAMUNE [Suspect]
     Dosage: 200MG
     Route: 048
     Dates: start: 20080214, end: 20081218
  2. ASPIRIN [Concomitant]
     Dosage: 1ANZ
     Route: 048
  3. ATENOLOL [Concomitant]
  4. CIALIS [Concomitant]
  5. CLONAZEPAM [Concomitant]
  6. EMTRICITABINE [Concomitant]
     Route: 048
     Dates: start: 20080214
  7. FLUPENTIXOL [Concomitant]
     Dosage: 2MG
     Route: 048
  8. KETOCONAZOLE [Concomitant]
  9. OMEPRAZOLE [Concomitant]
  10. PIPORTIL DEPOT [Concomitant]
  11. PROCYCLIDINE HYDROCHLORIDE 2MG TAB [Concomitant]
  12. TENOFOVIR [Concomitant]
     Dosage: 1ANZ
     Route: 048
     Dates: start: 20080214

REACTIONS (1)
  - ARTHRITIS [None]
